FAERS Safety Report 20998082 (Version 2)
Quarter: 2022Q3

REPORT INFORMATION
  Report Type: Report from Study
  Country: DE (occurrence: DE)
  Receive Date: 20220623
  Receipt Date: 20220710
  Transmission Date: 20221027
  Serious: No
  Sender: FDA-Public Use
  Company Number: DE-BRISTOL-MYERS SQUIBB COMPANY-2022-057061

PATIENT
  Age: 68 Year
  Sex: Male

DRUGS (12)
  1. NIVOLUMAB [Suspect]
     Active Substance: NIVOLUMAB
     Indication: Renal cell carcinoma
     Route: 042
     Dates: start: 20171106, end: 20180523
  2. METFORMIN [Concomitant]
     Active Substance: METFORMIN HYDROCHLORIDE
     Indication: Metabolic disorder
     Dosage: PRIOR TO START OF NIVOLUMAB TREATMENT?1350
  3. PANTOZOL [Concomitant]
     Active Substance: PANTOPRAZOLE SODIUM
     Indication: Prophylaxis
     Dosage: PRIOR TO START OF NIVOLUMAB TREATMENT
  4. RAMIPRIL [Concomitant]
     Active Substance: RAMIPRIL
     Indication: Renal disorder
     Dosage: PRIOR TO START OF NIVOLUMAB TREATMENT
  5. RAMIPRIL [Concomitant]
     Active Substance: RAMIPRIL
     Indication: Gastrointestinal disorder
  6. SIMVASTATIN [Concomitant]
     Active Substance: SIMVASTATIN
     Indication: Renal disorder
     Dosage: PRIOR TO START OF NIVOLUMAB TREATMENT
  7. SIMVASTATIN [Concomitant]
     Active Substance: SIMVASTATIN
     Indication: Gastrointestinal disorder
  8. BISOPROLOL [Concomitant]
     Active Substance: BISOPROLOL
     Indication: Renal disorder
     Dosage: PRIOR TO START OF NIVOLUMAB TREATMENT
  9. BISOPROLOL [Concomitant]
     Active Substance: BISOPROLOL
     Indication: Gastrointestinal disorder
  10. LEVOTHYROXINE [Concomitant]
     Active Substance: LEVOTHYROXINE
     Indication: Adverse drug reaction
     Dates: start: 20190711
  11. LEVOTHYROXINE [Concomitant]
     Active Substance: LEVOTHYROXINE
     Dates: start: 20190712
  12. METOCLOPRAMIDE [Concomitant]
     Active Substance: METOCLOPRAMIDE
     Indication: Adverse drug reaction
     Dosage: PRIOR TO START OF NIVOLUMAB TREATMENTT

REACTIONS (1)
  - Neoplasm progression [Unknown]

NARRATIVE: CASE EVENT DATE: 20220113
